FAERS Safety Report 4494882-5 (Version None)
Quarter: 2004Q4

REPORT INFORMATION
  Report Type: 
  Country: None (occurrence: None)
  Receive Date: 20041103
  Receipt Date: 20041021
  Transmission Date: 20050328
  Serious: Yes (Disabling)
  Sender: FDA-Public Use
  Company Number: SUSI-2004-00674

PATIENT
  Age: 69 Year
  Sex: Male
  Weight: 77.1 kg

DRUGS (5)
  1. AGRILYN (ANAGRELIDE HYDROCHLORIDE) CAPSULE [Suspect]
     Indication: PLATELET COUNT INCREASED
     Dosage: 0.5 MG, 3X/DAY:TID, ORAL
     Route: 048
     Dates: start: 20030101
  2. AMLODIPINE BESYLATE [Concomitant]
  3. NADOLOL [Concomitant]
  4. FUROSEMIDE [Concomitant]
  5. BUFFERIN /USA/ (ACETYLSALICYLIC ACID, MAGNESIUM CARBONATE, ALUMINUM GL [Concomitant]

REACTIONS (3)
  - ANGIOPATHY [None]
  - BLINDNESS UNILATERAL [None]
  - RETINAL DISORDER [None]
